FAERS Safety Report 6626867-4 (Version None)
Quarter: 2010Q1

REPORT INFORMATION
  Report Type: 
  Country: None (occurrence: None)
  Receive Date: 20100311
  Receipt Date: 20100223
  Transmission Date: 20100710
  Serious: No
  Sender: FDA-Public Use
  Company Number: ID-JNJFOC-20100211116

PATIENT
  Sex: Male

DRUGS (1)
  1. DURAGESIC-100 [Suspect]
     Indication: ARTHRALGIA
     Dosage: 2 PATCHES OF 25UG/HR
     Route: 062

REACTIONS (4)
  - APPLICATION SITE ERYTHEMA [None]
  - APPLICATION SITE PAIN [None]
  - APPLICATION SITE PRURITUS [None]
  - DRUG ADMINISTERED AT INAPPROPRIATE SITE [None]
